FAERS Safety Report 11297645 (Version 1)
Quarter: 2015Q3

REPORT INFORMATION
  Report Type: Spontaneous
  Country: US (occurrence: US)
  Receive Date: 20150722
  Receipt Date: 20150722
  Transmission Date: 20151125
  Serious: No
  Sender: FDA-Public Use
  Company Number: US-ELI_LILLY_AND_COMPANY-US200903001529

PATIENT
  Sex: Female

DRUGS (2)
  1. HUMATROPE [Suspect]
     Active Substance: SOMATROPIN
     Dosage: 0.2 MG, UNKNOWN
  2. HUMATROPE [Suspect]
     Active Substance: SOMATROPIN
     Dosage: 0.1 MG, UNKNOWN

REACTIONS (5)
  - Foot fracture [Not Recovered/Not Resolved]
  - Multiple fractures [Unknown]
  - Hunger [Not Recovered/Not Resolved]
  - Injection site haemorrhage [Recovered/Resolved]
  - Weight increased [Not Recovered/Not Resolved]

NARRATIVE: CASE EVENT DATE: 200902
